FAERS Safety Report 20543201 (Version 1)
Quarter: 2022Q1

REPORT INFORMATION
  Report Type: Spontaneous
  Country: US (occurrence: None)
  Receive Date: 20220302
  Receipt Date: 20220302
  Transmission Date: 20220424
  Serious: No
  Sender: FDA-Public Use
  Company Number: US-ROCHE-2840133

PATIENT
  Sex: Female

DRUGS (2)
  1. NUTROPIN [Suspect]
     Active Substance: SOMATROPIN
     Indication: Pituitary tumour benign
     Dosage: 10 MG/2ML
     Route: 058
     Dates: start: 20151106
  2. NUTROPIN [Suspect]
     Active Substance: SOMATROPIN

REACTIONS (2)
  - Drug ineffective [Unknown]
  - No adverse event [Unknown]
